FAERS Safety Report 25081130 (Version 3)
Quarter: 2025Q2

REPORT INFORMATION
  Report Type: Spontaneous
  Country: US (occurrence: US)
  Receive Date: 20250315
  Receipt Date: 20250410
  Transmission Date: 20250717
  Serious: Yes (Hospitalization, Other)
  Sender: TAKEDA
  Company Number: US-TAKEDA-2025TUS027003

PATIENT
  Sex: Male
  Weight: 82 kg

DRUGS (3)
  1. PENTASA [Suspect]
     Active Substance: MESALAMINE
     Indication: Product used for unknown indication
  2. MESALAMINE [Suspect]
     Active Substance: MESALAMINE
     Indication: Product used for unknown indication
  3. LIALDA [Suspect]
     Active Substance: MESALAMINE
     Indication: Crohn^s disease
     Dosage: 1.2 GRAM, QD
     Dates: start: 2017, end: 202503

REACTIONS (5)
  - Pain [Unknown]
  - Crohn^s disease [Unknown]
  - Insurance issue [Unknown]
  - Product dose omission issue [Unknown]
  - Product availability issue [Unknown]
